FAERS Safety Report 9740035 (Version 1)
Quarter: 2013Q4

REPORT INFORMATION
  Report Type: Spontaneous
  Country: US (occurrence: US)
  Receive Date: 20131209
  Receipt Date: 20131209
  Transmission Date: 20140711
  Serious: Yes (Hospitalization)
  Sender: FDA-Public Use
  Company Number: US-ROXANE LABORATORIES, INC.-2013-RO-01913RO

PATIENT
  Age: 28 Year
  Sex: Male

DRUGS (2)
  1. METHOTREXATE [Suspect]
     Indication: CROHN^S DISEASE
  2. USTEKINUMAB [Suspect]
     Indication: CROHN^S DISEASE

REACTIONS (1)
  - Hypersensitivity vasculitis [Recovered/Resolved]
